FAERS Safety Report 4564453-0 (Version None)
Quarter: 2005Q1

REPORT INFORMATION
  Report Type: 
  Country: None (occurrence: None)
  Receive Date: 20050128
  Receipt Date: 20040126
  Transmission Date: 20050727
  Serious: No
  Sender: FDA-Public Use
  Company Number: US-BRISTOL-MYERS SQUIBB COMPANY-12487005

PATIENT
  Sex: Male

DRUGS (1)
  1. ULTRAVATE [Suspect]
     Indication: ECZEMA
     Dosage: FREQUENCY: SEVERAL TIMES PER DAY.
     Route: 061

REACTIONS (1)
  - INFERTILITY [None]
